FAERS Safety Report 4768514-2 (Version None)
Quarter: 2005Q3

REPORT INFORMATION
  Report Type: 
  Country: None (occurrence: None)
  Receive Date: 20050914
  Receipt Date: 20050912
  Transmission Date: 20060218
  Serious: Yes (Life-Threatening)
  Sender: FDA-Public Use
  Company Number: PHNR2005AU01379

PATIENT
  Age: 59 Year
  Sex: Male
  Weight: 75 kg

DRUGS (2)
  1. ACETAMINOPHEN [Concomitant]
     Indication: PAIN
     Dosage: 2 G, QD
     Route: 048
  2. VOLTAREN [Suspect]
     Indication: PAIN
     Dosage: 100 MG, ONCE/SINGLE
     Dates: start: 20041103, end: 20041103

REACTIONS (5)
  - BRADYCARDIA [None]
  - CYANOSIS [None]
  - FLUSHING [None]
  - HYPOTENSION [None]
  - VASODILATATION [None]
